FAERS Safety Report 25376549 (Version 1)
Quarter: 2025Q2

REPORT INFORMATION
  Report Type: Report from Study
  Country: US (occurrence: US)
  Receive Date: 20250530
  Receipt Date: 20250530
  Transmission Date: 20250716
  Serious: Yes (Other)
  Sender: ABBVIE
  Company Number: US-ABBVIE-5859691

PATIENT
  Age: 55 Year
  Sex: Female

DRUGS (1)
  1. SKYRIZI [Suspect]
     Active Substance: RISANKIZUMAB-RZAA
     Indication: Psoriasis
     Route: 058
     Dates: start: 20240627

REACTIONS (11)
  - Lupus-like syndrome [Recovering/Resolving]
  - Rash papular [Recovering/Resolving]
  - Pain [Unknown]
  - Sensitive skin [Unknown]
  - Urinary tract infection [Unknown]
  - Arthralgia [Unknown]
  - Rash pruritic [Unknown]
  - Abdominal pain upper [Unknown]
  - Weight decreased [Unknown]
  - Gastrointestinal disorder [Unknown]
  - Inflammatory marker increased [Unknown]

NARRATIVE: CASE EVENT DATE: 20240101
